FAERS Safety Report 6419596-3 (Version None)
Quarter: 2009Q4

REPORT INFORMATION
  Report Type: 
  Country: None (occurrence: None)
  Receive Date: 20091029
  Receipt Date: 20091022
  Transmission Date: 20100525
  Serious: Yes (Other)
  Sender: FDA-Public Use
  Company Number: GB-AVENTIS-200922012GDDC

PATIENT
  Age: 65 Year
  Sex: Female
  Weight: 68.2 kg

DRUGS (13)
  1. LEFLUNOMIDE [Suspect]
     Dosage: DOSE: UNK
     Route: 048
     Dates: start: 20090821, end: 20090928
  2. ALENDRONIC ACID [Concomitant]
     Dosage: DOSE: UNK
  3. ASPIRIN [Concomitant]
     Dosage: DOSE: UNK
  4. CALCIUM CARBONATE [Concomitant]
     Dosage: DOSE: UNK
  5. CO-CODAMOL [Concomitant]
     Dosage: DOSE: UNK
  6. CODEINE PHOSPHATE [Concomitant]
     Dosage: DOSE: UNK
  7. COMBIVENT [Concomitant]
     Dosage: DOSE: UNK
     Route: 055
  8. DILTIAZEM [Concomitant]
  9. ESOMEPRAZOLE MAGNESIUM [Concomitant]
     Dosage: DOSE: UNK
  10. IPRATROPIUM [Concomitant]
     Dosage: DOSE: UNK
     Route: 055
  11. PHYLLOCONTIN [Concomitant]
  12. ALBUTEROL [Concomitant]
     Dosage: DOSE: UNK
  13. SERETIDE [Concomitant]
     Dosage: DOSE: UNK
     Route: 055

REACTIONS (3)
  - BRONCHIECTASIS [None]
  - DYSPNOEA [None]
  - WHEEZING [None]
